FAERS Safety Report 6248445-1 (Version None)
Quarter: 2009Q2

REPORT INFORMATION
  Report Type: 
  Country: None (occurrence: None)
  Receive Date: 20090625
  Receipt Date: 20090625
  Transmission Date: 20091009
  Serious: No
  Sender: FDA-Public Use
  Company Number: None

PATIENT
  Sex: Female
  Weight: 63.5036 kg

DRUGS (1)
  1. ACTONEL [Suspect]

REACTIONS (4)
  - ABDOMINAL PAIN UPPER [None]
  - ARTHRALGIA [None]
  - MYALGIA [None]
  - PAIN IN EXTREMITY [None]
